FAERS Safety Report 20896311 (Version 1)
Quarter: 2022Q2

REPORT INFORMATION
  Report Type: Spontaneous
  Country: CN (occurrence: CN)
  Receive Date: 20220531
  Receipt Date: 20220531
  Transmission Date: 20220721
  Serious: Yes (Hospitalization, Other)
  Sender: FDA-Public Use
  Company Number: CN-BAYER-2022A076784

PATIENT
  Age: 51 Year
  Sex: Female
  Weight: 70 kg

DRUGS (6)
  1. STIVARGA [Suspect]
     Active Substance: REGORAFENIB
     Indication: Hepatic cancer
     Dosage: 160 MG, QD
     Route: 048
     Dates: start: 20220513, end: 20220527
  2. ETORICOXIB [Suspect]
     Active Substance: ETORICOXIB
     Indication: Analgesic therapy
     Dosage: 120 MG, QD
     Route: 048
     Dates: start: 20220524, end: 20220527
  3. ETORICOXIB [Suspect]
     Active Substance: ETORICOXIB
     Indication: Antiinflammatory therapy
  4. BICYCLOL [Concomitant]
     Active Substance: BICYCLOL
     Indication: Hepatobiliary disorder prophylaxis
     Dosage: 25 MG, TID
     Route: 048
     Dates: start: 20220524, end: 20220527
  5. TENOFOVIR DISOPROXIL FUMARATE [Concomitant]
     Active Substance: TENOFOVIR DISOPROXIL FUMARATE
     Indication: Antiviral treatment
     Dosage: 0.3 G, QD
     Route: 048
     Dates: start: 20220524, end: 20220527
  6. ENTECAVIR [Concomitant]
     Active Substance: ENTECAVIR
     Indication: Antiviral treatment
     Dosage: 0.5 MG, QD
     Route: 048
     Dates: start: 20220524, end: 20220527

REACTIONS (5)
  - Metastases to bone [None]
  - Haemorrhage subcutaneous [None]
  - Rash erythematous [Recovering/Resolving]
  - Back pain [None]
  - Pain in extremity [None]

NARRATIVE: CASE EVENT DATE: 20220522
